FAERS Safety Report 19829725 (Version 2)
Quarter: 2021Q4

REPORT INFORMATION
  Report Type: Spontaneous
  Country: DE (occurrence: DE)
  Receive Date: 20210915
  Receipt Date: 20211006
  Transmission Date: 20220303
  Serious: Yes (Death, Hospitalization, Other)
  Sender: FDA-Public Use
  Company Number: DE-BOEHRINGERINGELHEIM-2020-BI-007533

PATIENT
  Age: 56 Year
  Sex: Male
  Weight: 80.5 kg

DRUGS (3)
  1. DOCETAXEL [Suspect]
     Active Substance: DOCETAXEL
     Indication: Lung adenocarcinoma
     Dosage: 75 MILLIGRAM/SQ. METER BODY SURFACE AREA , ONE ONCE A DAY
     Route: 042
     Dates: start: 20200122, end: 20200122
  2. NINTEDANIB [Suspect]
     Active Substance: NINTEDANIB
     Indication: Lung adenocarcinoma
     Dosage: 400 MILLIGRAM, ONCE A DAY
     Route: 048
     Dates: start: 20200123, end: 20200129
  3. NINTEDANIB [Suspect]
     Active Substance: NINTEDANIB
     Dosage: 200 MILLIGRAM
     Route: 065
     Dates: start: 20200123, end: 20200129

REACTIONS (2)
  - Sepsis [Fatal]
  - Neutrophil count decreased [Recovered/Resolved]

NARRATIVE: CASE EVENT DATE: 20200130
